FAERS Safety Report 24709318 (Version 2)
Quarter: 2025Q2

REPORT INFORMATION
  Report Type: Spontaneous
  Country: JP (occurrence: JP)
  Receive Date: 20241208
  Receipt Date: 20250410
  Transmission Date: 20250717
  Serious: Yes (Hospitalization)
  Sender: NOVEN
  Company Number: JP-NOVEN PHARMACEUTICALS, INC.-2024-NOV-JP001626

PATIENT
  Age: 24 Year
  Sex: Female
  Weight: 56.299 kg

DRUGS (2)
  1. ESTRADIOL [Suspect]
     Active Substance: ESTRADIOL
     Indication: Hormone replacement therapy
     Dosage: 0.36 MG, (0.72 MG, 1 IN 2 DAY)
     Route: 062
  2. MEDROXYPROGESTERONE ACETATE [Suspect]
     Active Substance: MEDROXYPROGESTERONE ACETATE
     Indication: Hormone replacement therapy
     Dosage: 10 MG, DAILY FOR 10 DAYS
     Route: 048

REACTIONS (2)
  - Vaginal haematoma [Recovered/Resolved]
  - Withdrawal bleed [Recovered/Resolved]
